FAERS Safety Report 6080573-6 (Version None)
Quarter: 2009Q1

REPORT INFORMATION
  Report Type: 
  Country: None (occurrence: None)
  Receive Date: 20090217
  Receipt Date: 20090211
  Transmission Date: 20090719
  Serious: Yes (Hospitalization)
  Sender: FDA-Public Use
  Company Number: B0558829A

PATIENT
  Age: 88 Year
  Sex: Male

DRUGS (8)
  1. ZANTAC [Suspect]
     Route: 048
     Dates: start: 20081201, end: 20090128
  2. SOTALOL HCL [Concomitant]
     Dosage: 80MG PER DAY
  3. ALBYL E [Concomitant]
     Dosage: 75MG PER DAY
     Route: 065
  4. LAXOBERAL [Concomitant]
     Route: 065
  5. LACTULOSE [Concomitant]
     Dosage: 10ML PER DAY
     Route: 065
  6. CHLORAMPHENICOL [Concomitant]
     Route: 065
  7. TRAVATAN [Concomitant]
     Route: 065
  8. HYDROXYUREA [Concomitant]
     Dosage: 500MG PER DAY
     Route: 065

REACTIONS (5)
  - AGGRESSION [None]
  - CONFUSIONAL STATE [None]
  - DEPRESSION [None]
  - HALLUCINATION, AUDITORY [None]
  - HALLUCINATION, VISUAL [None]
